FAERS Safety Report 9950100 (Version 1)
Quarter: 2014Q1

REPORT INFORMATION
  Report Type: Report from Study
  Country: US (occurrence: US)
  Receive Date: 20140304
  Receipt Date: 20140304
  Transmission Date: 20141002
  Serious: No
  Sender: FDA-Public Use
  Company Number: US-ABBVIE-13P-163-1065731-00

PATIENT
  Age: 71 Year
  Sex: Male

DRUGS (13)
  1. HUMIRA [Suspect]
     Indication: PSORIASIS
     Route: 058
     Dates: start: 20130208
  2. ALLOPURINOL [Concomitant]
     Indication: GOUT
     Route: 048
  3. ASA [Concomitant]
     Indication: PRODUCT USED FOR UNKNOWN INDICATION
     Route: 048
  4. FISH OIL [Concomitant]
     Indication: PRODUCT USED FOR UNKNOWN INDICATION
     Route: 048
  5. TRIAMTERENE [Concomitant]
     Indication: HYPERTENSION
     Dosage: 37.5MG QAM
     Route: 048
  6. METOPROLOL [Concomitant]
     Indication: BLOOD PRESSURE
     Route: 048
  7. OMEPRAZOLE [Concomitant]
     Indication: GASTROOESOPHAGEAL REFLUX DISEASE
     Route: 048
  8. ROSUVASTATIN [Concomitant]
     Indication: BLOOD CHOLESTEROL INCREASED
     Route: 048
  9. TERAZOSIN [Concomitant]
     Indication: PROSTATIC DISORDER
     Dosage: 5MG QPM
     Route: 048
  10. THEOPHYLLINE [Concomitant]
     Indication: RESPIRATORY DISORDER
     Route: 048
  11. ISOSORBIDE MONONITRATE [Concomitant]
     Indication: CARDIAC DISORDER
     Route: 048
  12. HYDROCODONE [Concomitant]
     Indication: DIABETIC NEUROPATHY
     Route: 048
  13. NITROGLYCERINE [Concomitant]
     Indication: PRODUCT USED FOR UNKNOWN INDICATION

REACTIONS (1)
  - Vitreous floaters [Not Recovered/Not Resolved]
